FAERS Safety Report 6596144-9 (Version None)
Quarter: 2010Q1

REPORT INFORMATION
  Report Type: 
  Country: None (occurrence: None)
  Receive Date: 20100223
  Receipt Date: 20100219
  Transmission Date: 20100710
  Serious: No
  Sender: FDA-Public Use
  Company Number: JP-SANOFI-AVENTIS-200912044JP

PATIENT
  Age: 55 Year
  Sex: Male

DRUGS (3)
  1. OPTICLICK [Suspect]
  2. OPTICLICK [Suspect]
  3. INSULIN GLARGINE [Suspect]
     Route: 058

REACTIONS (1)
  - HYPOGLYCAEMIA [None]
